FAERS Safety Report 5442811-X (Version None)
Quarter: 2007Q3

REPORT INFORMATION
  Report Type: 
  Country: None (occurrence: None)
  Receive Date: 20070904
  Receipt Date: 20070816
  Transmission Date: 20080115
  Serious: No
  Sender: FDA-Public Use
  Company Number: US-BOEHRINGER INGELHEIM PHARMACEUTICALS, INC.-2007-BP-19356BP

PATIENT
  Sex: Male

DRUGS (5)
  1. SPIRIVA [Suspect]
     Indication: COUGH
     Route: 055
     Dates: start: 20061201, end: 20070101
  2. SPIRIVA [Suspect]
     Indication: INCREASED UPPER AIRWAY SECRETION
  3. ATENOLOL [Concomitant]
  4. ALLOPURINOL [Concomitant]
  5. LIPITOR [Concomitant]

REACTIONS (1)
  - DRUG INEFFECTIVE [None]
